FAERS Safety Report 7445325-0 (Version None)
Quarter: 2011Q2

REPORT INFORMATION
  Report Type: 
  Country: None (occurrence: None)
  Receive Date: 20110429
  Receipt Date: 20100601
  Transmission Date: 20111010
  Serious: No
  Sender: FDA-Public Use
  Company Number: A0865383A

PATIENT
  Age: 31 Year
  Sex: Female
  Weight: 71 kg

DRUGS (3)
  1. ZOFRAN [Suspect]
     Route: 048
  2. ZOFRAN [Suspect]
     Indication: PREGNANCY
     Dosage: 32MG PER DAY
     Route: 058
  3. UNKNOWN [Concomitant]

REACTIONS (3)
  - INJECTION SITE IRRITATION [None]
  - DRUG EXPOSURE DURING PREGNANCY [None]
  - DRUG INEFFECTIVE [None]
